FAERS Safety Report 14032226 (Version 6)
Quarter: 2018Q1

REPORT INFORMATION
  Report Type: Report from Study
  Country: US (occurrence: US)
  Receive Date: 20171002
  Receipt Date: 20180302
  Transmission Date: 20180508
  Serious: Yes (Other)
  Sender: FDA-Public Use
  Company Number: US-PFIZER INC-2017397650

PATIENT
  Age: 58 Year
  Sex: Female

DRUGS (1)
  1. IBRANCE [Suspect]
     Active Substance: PALBOCICLIB
     Indication: BREAST CANCER
     Dosage: 125 MG, 1X/DAY
     Route: 048
     Dates: start: 20170813

REACTIONS (16)
  - Stomatitis [Recovered/Resolved]
  - Epistaxis [Unknown]
  - Pneumonia [Recovered/Resolved]
  - Nasal disorder [Unknown]
  - Bone marrow failure [Unknown]
  - Hypotension [Unknown]
  - Peripheral swelling [Unknown]
  - Thrombosis [Unknown]
  - Increased tendency to bruise [Unknown]
  - Dry skin [Unknown]
  - Influenza [Recovered/Resolved]
  - White blood cell count decreased [Not Recovered/Not Resolved]
  - Fatigue [Not Recovered/Not Resolved]
  - Haemorrhagic diathesis [Unknown]
  - Contusion [Unknown]
  - Anaemia [Not Recovered/Not Resolved]

NARRATIVE: CASE EVENT DATE: 2017
